FAERS Safety Report 9991465 (Version 1)
Quarter: 2014Q1

REPORT INFORMATION
  Report Type: Report from Study
  Country: US (occurrence: US)
  Receive Date: 20140310
  Receipt Date: 20140310
  Transmission Date: 20141002
  Serious: No
  Sender: FDA-Public Use
  Company Number: US-ABBVIE-13P-163-1136510-00

PATIENT
  Age: 18 Year
  Sex: Male

DRUGS (5)
  1. HUMIRA [Suspect]
     Indication: CROHN^S DISEASE
     Dates: start: 20130723
  2. HUMIRA [Suspect]
     Dosage: 2ND LOADING DOSE 80MG
     Dates: start: 20130806
  3. LIALDA [Concomitant]
     Indication: CROHN^S DISEASE
     Dosage: 1.2MG 2 PILLS IN MORNING AND 2 IN AFTERNOON
  4. MULTIVITAMIN [Concomitant]
     Indication: VITAMIN SUPPLEMENTATION
  5. BOOST [Concomitant]
     Indication: PRODUCT USED FOR UNKNOWN INDICATION
     Dosage: NOW AND THEN

REACTIONS (1)
  - Abdominal pain upper [Not Recovered/Not Resolved]
